FAERS Safety Report 9486225 (Version 1)
Quarter: 2013Q3

REPORT INFORMATION
  Report Type: Spontaneous
  Country: AU (occurrence: AU)
  Receive Date: 20130829
  Receipt Date: 20130829
  Transmission Date: 20140515
  Serious: Yes (Hospitalization, Other)
  Sender: FDA-Public Use
  Company Number: AU-PFIZER INC-2013248345

PATIENT
  Age: 84 Year
  Sex: Female

DRUGS (2)
  1. LYRICA [Suspect]
     Indication: NEURALGIA
     Dosage: 75 MG, 2X/DAY
     Dates: start: 20130809
  2. INSULIN [Concomitant]
     Indication: TYPE 2 DIABETES MELLITUS
     Dosage: UNK

REACTIONS (9)
  - Infective exacerbation of chronic obstructive airways disease [Recovering/Resolving]
  - Delirium [Recovering/Resolving]
  - Renal failure acute [Recovering/Resolving]
  - Confusional state [Recovering/Resolving]
  - Tremor [Recovered/Resolved]
  - Restlessness [Recovered/Resolved]
  - Restless legs syndrome [Recovered/Resolved]
  - Dysphagia [Recovered/Resolved]
  - Dizziness [Unknown]
